FAERS Safety Report 10460455 (Version 9)
Quarter: 2016Q1

REPORT INFORMATION
  Report Type: Report from Study
  Country: CA (occurrence: CA)
  Receive Date: 20140917
  Receipt Date: 20160314
  Transmission Date: 20160525
  Serious: Yes (Other)
  Sender: FDA-Public Use
  Company Number: CA-ROCHE-1344343

PATIENT
  Age: 56 Year
  Sex: Female
  Weight: 83 kg

DRUGS (12)
  1. VOLTAREN [Concomitant]
     Active Substance: DICLOFENAC SODIUM
  2. OLANZAPINE. [Concomitant]
     Active Substance: OLANZAPINE
  3. TRAZODONE [Concomitant]
     Active Substance: TRAZODONE HYDROCHLORIDE
  4. ACTEMRA [Suspect]
     Active Substance: TOCILIZUMAB
     Route: 042
     Dates: start: 20140219
  5. ALEVE [Concomitant]
     Active Substance: NAPROXEN SODIUM
  6. GRAVOL [Concomitant]
     Active Substance: DIMENHYDRINATE
  7. METHOTREXATE [Concomitant]
     Active Substance: METHOTREXATE
  8. TYLENOL #1 (CANADA) [Concomitant]
     Active Substance: ACETAMINOPHEN\CAFFEINE\CODEINE PHOSPHATE
  9. OXYBUTYNIN [Concomitant]
     Active Substance: OXYBUTYNIN
  10. ALPRAZOLAM. [Concomitant]
     Active Substance: ALPRAZOLAM
  11. FOLIC ACID. [Concomitant]
     Active Substance: FOLIC ACID
  12. ACTEMRA [Suspect]
     Active Substance: TOCILIZUMAB
     Indication: RHEUMATOID ARTHRITIS
     Route: 042
     Dates: start: 20130905

REACTIONS (20)
  - Paraesthesia [Not Recovered/Not Resolved]
  - Tooth infection [Unknown]
  - Bronchitis [Not Recovered/Not Resolved]
  - Weight increased [Unknown]
  - Nausea [Not Recovered/Not Resolved]
  - Vomiting [Not Recovered/Not Resolved]
  - Stomatitis [Recovering/Resolving]
  - Lethargy [Recovering/Resolving]
  - Influenza like illness [Recovered/Resolved]
  - Transient ischaemic attack [Unknown]
  - Dysphagia [Not Recovered/Not Resolved]
  - Drug dose omission [Unknown]
  - Contusion [Unknown]
  - Pain [Not Recovered/Not Resolved]
  - Rash [Not Recovered/Not Resolved]
  - Myalgia [Recovering/Resolving]
  - Tooth fracture [Not Recovered/Not Resolved]
  - Vasculitis [Unknown]
  - Diarrhoea haemorrhagic [Not Recovered/Not Resolved]
  - Pyrexia [Recovered/Resolved]

NARRATIVE: CASE EVENT DATE: 2014
